FAERS Safety Report 9529697 (Version 1)
Quarter: 2013Q3

REPORT INFORMATION
  Report Type: Spontaneous
  Country: US (occurrence: US)
  Receive Date: 20130917
  Receipt Date: 20130917
  Transmission Date: 20140515
  Serious: No
  Sender: FDA-Public Use
  Company Number: US-ASTRAZENECA-2013SE54622

PATIENT
  Age: 68 Year
  Sex: Female

DRUGS (9)
  1. TENORETIC [Suspect]
     Indication: ANXIETY
     Route: 048
     Dates: start: 1986
  2. TENORETIC [Suspect]
     Indication: BLOOD PRESSURE ABNORMAL
     Route: 048
     Dates: start: 1986
  3. TENORETIC [Suspect]
     Indication: ANXIETY
     Dosage: GENERIC
     Route: 048
     Dates: start: 1996
  4. TENORETIC [Suspect]
     Indication: BLOOD PRESSURE ABNORMAL
     Dosage: GENERIC
     Route: 048
     Dates: start: 1996
  5. TENORETIC [Suspect]
     Indication: ANXIETY
     Route: 048
     Dates: start: 201307
  6. TENORETIC [Suspect]
     Indication: BLOOD PRESSURE ABNORMAL
     Route: 048
     Dates: start: 201307
  7. ATENOLOL/CHLORTHALIDONE [Suspect]
     Indication: BLOOD PRESSURE ABNORMAL
     Route: 048
  8. ATENOLOL/HCTZ [Suspect]
     Indication: BLOOD PRESSURE ABNORMAL
     Route: 048
     Dates: start: 1996, end: 2005
  9. ESTROGEN [Concomitant]
     Indication: SUPPLEMENTATION THERAPY
     Dosage: 1.25

REACTIONS (6)
  - Hypokalaemia [Unknown]
  - Glucose tolerance impaired [Unknown]
  - Joint swelling [Not Recovered/Not Resolved]
  - Local swelling [Unknown]
  - Adverse event [Unknown]
  - Weight increased [Unknown]
